FAERS Safety Report 6561964-3 (Version None)
Quarter: 2010Q1

REPORT INFORMATION
  Report Type: 
  Country: None (occurrence: None)
  Receive Date: 20100130
  Receipt Date: 20091217
  Transmission Date: 20100710
  Serious: No
  Sender: FDA-Public Use
  Company Number: US-ABBOTT-09P-163-0589116-00

PATIENT
  Sex: Female
  Weight: 61.29 kg

DRUGS (5)
  1. HUMIRA [Suspect]
     Indication: RHEUMATOID ARTHRITIS
     Route: 058
     Dates: start: 20070101, end: 20090701
  2. HUMIRA [Suspect]
     Route: 058
     Dates: start: 20090701
  3. CEFDINIR [Suspect]
     Indication: COUGH
     Dates: start: 20090101, end: 20090101
  4. CEFDINIR [Suspect]
     Indication: NASOPHARYNGITIS
  5. METHOTREXATE [Concomitant]
     Indication: DRUG USE FOR UNKNOWN INDICATION

REACTIONS (6)
  - COUGH [None]
  - DRUG DOSE OMISSION [None]
  - DRUG INEFFECTIVE [None]
  - NASOPHARYNGITIS [None]
  - RASH [None]
  - RHEUMATOID ARTHRITIS [None]
